FAERS Safety Report 7594302-8 (Version None)
Quarter: 2011Q3

REPORT INFORMATION
  Report Type: 
  Country: None (occurrence: None)
  Receive Date: 20110706
  Receipt Date: 20110627
  Transmission Date: 20111222
  Serious: Yes (Disabling)
  Sender: FDA-Public Use
  Company Number: BR-ASTRAZENECA-2011SE18322

PATIENT
  Age: 73 Year
  Sex: Male
  Weight: 90 kg

DRUGS (5)
  1. SEROQUEL [Suspect]
     Indication: MOOD ALTERED
     Route: 048
     Dates: start: 20090101
  2. METFORMIN HCL [Concomitant]
     Indication: DIABETES MELLITUS
     Route: 048
     Dates: start: 20060101
  3. CRESTOR [Suspect]
     Route: 048
     Dates: start: 20070101
  4. GLIMEPIRIDE [Concomitant]
     Indication: DIABETES MELLITUS
     Route: 048
     Dates: start: 20060101
  5. UNKNOWN [Concomitant]
     Indication: PROSTATOMEGALY
     Route: 048
     Dates: start: 20090101

REACTIONS (5)
  - TRANSIENT ISCHAEMIC ATTACK [None]
  - IMPAIRED DRIVING ABILITY [None]
  - MEMORY IMPAIRMENT [None]
  - DRUG PRESCRIBING ERROR [None]
  - MOOD ALTERED [None]
